FAERS Safety Report 20468974 (Version 1)
Quarter: 2022Q1

REPORT INFORMATION
  Report Type: Spontaneous
  Country: US (occurrence: US)
  Receive Date: 20220214
  Receipt Date: 20220214
  Transmission Date: 20220424
  Serious: Yes (Other)
  Sender: FDA-Public Use
  Company Number: US-GLAXOSMITHKLINE-US2022GSK023295

PATIENT
  Sex: Male

DRUGS (4)
  1. ZANTAC [Suspect]
     Active Substance: RANITIDINE HYDROCHLORIDE
     Indication: Hernia
     Dosage: UNK UNK, QD
     Route: 065
     Dates: start: 198401, end: 201003
  2. ZANTAC [Suspect]
     Active Substance: RANITIDINE HYDROCHLORIDE
     Indication: Hernia
     Dosage: UNK UNK, QD
     Route: 065
     Dates: start: 198401, end: 201003
  3. RANITIDINE [Suspect]
     Active Substance: RANITIDINE
     Indication: Hernia
     Dosage: UNK, QD
     Route: 065
     Dates: start: 198401, end: 201003
  4. RANITIDINE [Suspect]
     Active Substance: RANITIDINE
     Indication: Hernia
     Dosage: UNK, QD
     Route: 065
     Dates: start: 198401, end: 201003

REACTIONS (1)
  - Bladder cancer [Unknown]
